FAERS Safety Report 17484320 (Version 1)
Quarter: 2020Q1

REPORT INFORMATION
  Report Type: Spontaneous
  Country: US (occurrence: US)
  Receive Date: 20200219
  Receipt Date: 20200219
  Transmission Date: 20200409
  Serious: Yes (Hospitalization)
  Sender: FDA-Public Use
  Company Number: None

PATIENT
  Sex: Male

DRUGS (1)
  1. CAPECITABINE  500MG [Suspect]
     Active Substance: CAPECITABINE
     Indication: COLON CANCER
     Dosage: ?          OTHER FREQUENCY:14DAYS ;?
     Route: 048
     Dates: start: 20200116

REACTIONS (4)
  - Paraesthesia [None]
  - Diarrhoea [None]
  - Nausea [None]
  - Thrombosis [None]
